FAERS Safety Report 24675814 (Version 1)
Quarter: 2024Q4

REPORT INFORMATION
  Report Type: Report from Study
  Country: JP (occurrence: JP)
  Receive Date: 20241128
  Receipt Date: 20241128
  Transmission Date: 20250115
  Serious: Yes (Hospitalization)
  Sender: BIOCODEX
  Company Number: JP-BIOCODEX-2010-196

PATIENT
  Age: 6 Year
  Sex: Male

DRUGS (14)
  1. DIACOMIT [Suspect]
     Active Substance: STIRIPENTOL
     Indication: Epilepsy
     Route: 048
     Dates: start: 20100527, end: 20100603
  2. DIACOMIT [Suspect]
     Active Substance: STIRIPENTOL
     Indication: Epilepsy
     Route: 048
     Dates: start: 20100603, end: 20100610
  3. DIACOMIT [Suspect]
     Active Substance: STIRIPENTOL
     Indication: Epilepsy
     Route: 048
     Dates: start: 20100610, end: 20100617
  4. DIACOMIT [Suspect]
     Active Substance: STIRIPENTOL
     Indication: Epilepsy
     Route: 048
     Dates: start: 20100617
  5. DIACOMIT [Suspect]
     Active Substance: STIRIPENTOL
     Indication: Epilepsy
     Route: 048
  6. CLOBAZAM [Concomitant]
     Active Substance: CLOBAZAM
     Indication: Epilepsy
     Dates: start: 20100315, end: 20100623
  7. CLOBAZAM [Concomitant]
     Active Substance: CLOBAZAM
     Indication: Epilepsy
     Dates: start: 20100624, end: 20100707
  8. CLOBAZAM [Concomitant]
     Active Substance: CLOBAZAM
     Indication: Epilepsy
     Dates: start: 20100708
  9. VALPROATE SODIUM [Concomitant]
     Active Substance: VALPROATE SODIUM
     Indication: Epilepsy
     Route: 048
     Dates: start: 20100315
  10. POTASSIUM BROMIDE [Concomitant]
     Active Substance: POTASSIUM BROMIDE
     Indication: Epilepsy
     Route: 048
     Dates: start: 20100315
  11. GLYCYRRHIZINATE MONOAMMONIUM; GLYCINE; DL-METHIONINE [Concomitant]
     Indication: Hepatic function abnormal
     Route: 048
  12. GLYCYRRHIZINATE MONOAMMONIUM; GLYCINE; DL-METHIONINE [Concomitant]
     Indication: Hepatic function abnormal
     Route: 048
     Dates: end: 20100805
  13. FURSULTIAMINE HYDROCHLORIDE [Concomitant]
     Active Substance: FURSULTIAMINE HYDROCHLORIDE
     Route: 048
     Dates: end: 20100805
  14. TULOBUTEROL [Concomitant]
     Active Substance: TULOBUTEROL
     Indication: Cough
     Dates: start: 20100526

REACTIONS (4)
  - Tremor [Not Recovered/Not Resolved]
  - Somnolence [Not Recovered/Not Resolved]
  - Decreased appetite [Not Recovered/Not Resolved]
  - Dizziness [Not Recovered/Not Resolved]

NARRATIVE: CASE EVENT DATE: 20100530
